FAERS Safety Report 4436356-3 (Version None)
Quarter: 2004Q3

REPORT INFORMATION
  Report Type: 
  Country: None (occurrence: None)
  Receive Date: 20040728
  Receipt Date: 20040224
  Transmission Date: 20050211
  Serious: Yes (Hospitalization)
  Sender: FDA-Public Use
  Company Number: 204677

PATIENT
  Age: 43 Year
  Sex: Female

DRUGS (1)
  1. RITUXAN [Suspect]
     Indication: IDIOPATHIC THROMBOCYTOPENIC PURPURA
     Dosage: 800 MG, 1/WEEK
     Dates: start: 20040123

REACTIONS (3)
  - ARTHRALGIA [None]
  - MYALGIA [None]
  - PYREXIA [None]
